FAERS Safety Report 14925489 (Version 1)
Quarter: 2018Q2

REPORT INFORMATION
  Report Type: Spontaneous
  Country: DE (occurrence: DE)
  Receive Date: 20180522
  Receipt Date: 20180522
  Transmission Date: 20180711
  Serious: Yes (Hospitalization)
  Sender: FDA-Public Use
  Company Number: DE-PFIZER INC-2018201908

PATIENT
  Age: 77 Year
  Sex: Male

DRUGS (15)
  1. FUROSEMIDE. [Suspect]
     Active Substance: FUROSEMIDE
     Dosage: 40 MG, UNK (40 MG, 2-1-0-0)
  2. FOLSAEURE [Concomitant]
     Active Substance: FOLIC ACID
     Dosage: 5 MG, DAILY (5 MG, 1-0-0-0)
  3. PHENPROCOUMON [Concomitant]
     Active Substance: PHENPROCOUMON
     Dosage: UNK (TO INR)
  4. CITALOPRAM [Concomitant]
     Active Substance: CITALOPRAM HYDROBROMIDE
     Dosage: 20 MG, DAILY (20 MG, 1-0-0-0)
  5. INSULIN GLARGINE [Concomitant]
     Active Substance: INSULIN GLARGINE
     Dosage: 20 IU, DAILY (20 IU, 0-0-1-0)
  6. TAMSULOSIN [Concomitant]
     Active Substance: TAMSULOSIN
     Dosage: 0.4 MG, DAILY (0.4 MG, 0-0-1-0)
  7. METOPROLOL. [Suspect]
     Active Substance: METOPROLOL
     Dosage: 23.75 MG, UNK (23.75 MG, 1-0-1-0)
  8. SIMVASTATIN. [Concomitant]
     Active Substance: SIMVASTATIN
     Dosage: 40 MG, DAILY (40 MG, 0-0-1-0)
  9. PREGABALIN. [Suspect]
     Active Substance: PREGABALIN
     Dosage: 50 MG, UNK (50 MG, 1-0-1-0)
  10. COLECALCIFEROL [Concomitant]
     Active Substance: CHOLECALCIFEROL
     Dosage: 1000 IU, DAILY (1000 IU, 0-0-1-0)
  11. NITRENDIPIN [Suspect]
     Active Substance: NITRENDIPINE
     Dosage: 20 MG, 2X/DAY (20 MG, 1-0-0-1)
  12. XIPAMID [Suspect]
     Active Substance: XIPAMIDE
     Dosage: 20 MG, DAILY (20 MG, 1-0-0-0)
  13. KALIUM /00031401/ [Concomitant]
     Dosage: UNK  (20 MVAL, AS NEEDED)
  14. INSULIN ASPART [Concomitant]
     Active Substance: INSULIN ASPART
     Dosage: UNK (AS NEEDED)
  15. PANTOPRAZOLE [Concomitant]
     Active Substance: PANTOPRAZOLE
     Dosage: 40 MG, DAILY (40 MG, 0-0-0-1)

REACTIONS (1)
  - Fall [Unknown]

NARRATIVE: CASE EVENT DATE: 20150920
